FAERS Safety Report 5388698-5 (Version None)
Quarter: 2007Q3

REPORT INFORMATION
  Report Type: 
  Country: None (occurrence: None)
  Receive Date: 20070712
  Receipt Date: 20070629
  Transmission Date: 20080115
  Serious: Yes (Other)
  Sender: FDA-Public Use
  Company Number: VNL_00627_2007

PATIENT
  Sex: Male

DRUGS (1)
  1. APO-GO (APOMORPHINE HYDROCHLORIDE) [Suspect]
     Route: 058

REACTIONS (1)
  - HAEMOLYTIC ANAEMIA [None]
